FAERS Safety Report 17864780 (Version 1)
Quarter: 2020Q2

REPORT INFORMATION
  Report Type: Spontaneous
  Country: US (occurrence: US)
  Receive Date: 20200604
  Receipt Date: 20200604
  Transmission Date: 20200714
  Serious: Yes (Death)
  Sender: FDA-Public Use
  Company Number: None

PATIENT
  Age: 76 Year
  Sex: Male

DRUGS (4)
  1. EPOGEN [Suspect]
     Active Substance: ERYTHROPOIETIN
     Indication: ANAEMIA
     Dosage: ?          OTHER DOSE:20,000 UNITS;OTHER FREQUENCY:Q2 WEEKS ;?
     Route: 058
     Dates: start: 20191115
  2. EPOGEN [Suspect]
     Active Substance: ERYTHROPOIETIN
     Indication: CHRONIC KIDNEY DISEASE
     Dosage: ?          OTHER DOSE:20,000 UNITS;OTHER FREQUENCY:Q2 WEEKS ;?
     Route: 058
     Dates: start: 20191115
  3. EPOGEN [Suspect]
     Active Substance: ERYTHROPOIETIN
     Indication: CHRONIC KIDNEY DISEASE
     Dosage: ?          OTHER DOSE:20,000 UNITS;OTHER FREQUENCY:Q2 WEEKS ;?
     Route: 058
     Dates: start: 20191115
  4. EPOGEN [Suspect]
     Active Substance: ERYTHROPOIETIN
     Indication: ANAEMIA
     Dosage: ?          OTHER DOSE:20,000 UNITS;OTHER FREQUENCY:Q2 WEEKS ;?
     Route: 058
     Dates: start: 20191115

REACTIONS (1)
  - Death [None]

NARRATIVE: CASE EVENT DATE: 20200322
